FAERS Safety Report 7807986-3 (Version None)
Quarter: 2011Q4

REPORT INFORMATION
  Report Type: 
  Country: None (occurrence: None)
  Receive Date: 20111011
  Receipt Date: 20111011
  Transmission Date: 20120403
  Serious: Yes (Life-Threatening, Hospitalization)
  Sender: FDA-Public Use
  Company Number: None

PATIENT
  Age: 24 Year
  Sex: Female
  Weight: 63.502 kg

DRUGS (1)
  1. RELPAX [Suspect]
     Indication: MIGRAINE
     Dosage: 10MG
     Route: 048

REACTIONS (5)
  - FEELING ABNORMAL [None]
  - MUSCLE TWITCHING [None]
  - SEROTONIN SYNDROME [None]
  - FEAR [None]
  - DYSPHEMIA [None]
